FAERS Safety Report 20075885 (Version 1)
Quarter: 2021Q4

REPORT INFORMATION
  Report Type: Spontaneous
  Country: US (occurrence: US)
  Receive Date: 20211116
  Receipt Date: 20211116
  Transmission Date: 20220303
  Serious: Yes (Other)
  Sender: FDA-Public Use
  Company Number: US-ABBVIE-21K-163-4162649-00

PATIENT

DRUGS (1)
  1. LUPRON DEPOT [Suspect]
     Active Substance: LEUPROLIDE ACETATE
     Indication: Product used for unknown indication
     Route: 030

REACTIONS (5)
  - Chronic lymphocytic leukaemia [Unknown]
  - Tuberculosis [Unknown]
  - Neoplasm malignant [Unknown]
  - Coronary arterial stent insertion [Unknown]
  - Chronic obstructive pulmonary disease [Unknown]
